FAERS Safety Report 25059833 (Version 1)
Quarter: 2025Q1

REPORT INFORMATION
  Report Type: Spontaneous
  Country: US (occurrence: None)
  Receive Date: 20250307
  Receipt Date: 20250307
  Transmission Date: 20250409
  Serious: Yes (Life-Threatening, Hospitalization, Disabling, Congenital Anomaly, Other)
  Sender: FDA-CTU
  Company Number: None

PATIENT
  Sex: Female

DRUGS (2)
  1. CAMILA [Suspect]
     Active Substance: NORETHINDRONE
  2. VALACYCLOVIR HYDROCHLORIDE [Suspect]
     Active Substance: VALACYCLOVIR HYDROCHLORIDE

REACTIONS (9)
  - Family stress [None]
  - Legal problem [None]
  - Quality of life decreased [None]
  - Mental disorder [None]
  - Victim of abuse [None]
  - Pregnancy on contraceptive [None]
  - Circumstance or information capable of leading to medication error [None]
  - Homeless [None]
  - Product label issue [None]
